FAERS Safety Report 24740216 (Version 1)
Quarter: 2024Q4

REPORT INFORMATION
  Report Type: Report from Study
  Country: US (occurrence: US)
  Receive Date: 20241216
  Receipt Date: 20241216
  Transmission Date: 20250115
  Serious: Yes (Other)
  Sender: ABBVIE
  Company Number: US-ABBVIE-6046697

PATIENT
  Sex: Female

DRUGS (1)
  1. RINVOQ [Suspect]
     Active Substance: UPADACITINIB
     Indication: Psoriatic arthropathy
     Route: 048

REACTIONS (7)
  - Plantar fascial fibromatosis [Unknown]
  - Musculoskeletal disorder [Unknown]
  - Gait disturbance [Unknown]
  - Pain in extremity [Unknown]
  - Psoriatic arthropathy [Unknown]
  - Psoriasis [Unknown]
  - Loss of personal independence in daily activities [Unknown]
